FAERS Safety Report 20516089 (Version 2)
Quarter: 2022Q1

REPORT INFORMATION
  Report Type: Spontaneous
  Country: JP (occurrence: JP)
  Receive Date: 20220225
  Receipt Date: 20220310
  Transmission Date: 20220423
  Serious: Yes (Hospitalization, Other)
  Sender: FDA-Public Use
  Company Number: JP-GSKJP-JP2022JPN005734

PATIENT
  Sex: Female

DRUGS (7)
  1. BOTOX [Suspect]
     Active Substance: ONABOTULINUMTOXINA
     Indication: Muscle spasticity
     Dosage: 300 UNITS, SINGLE
     Route: 030
     Dates: start: 20210324, end: 20210324
  2. BOTOX [Suspect]
     Active Substance: ONABOTULINUMTOXINA
     Dosage: 300 UNITS, SINGLE
     Route: 030
     Dates: start: 20201125, end: 20201125
  3. BOTOX [Suspect]
     Active Substance: ONABOTULINUMTOXINA
     Dosage: 300 UNITS, SINGLE
     Route: 030
     Dates: start: 20191030, end: 20191030
  4. INCOBOTULINUMTOXINA [Concomitant]
     Active Substance: INCOBOTULINUMTOXINA
     Dosage: UNK
     Dates: start: 202108
  5. AMLODIPINE [Concomitant]
     Active Substance: AMLODIPINE BESYLATE
     Dosage: 1 DF
  6. EPERISONE HYDROCHLORIDE [Concomitant]
     Active Substance: EPERISONE HYDROCHLORIDE
     Dosage: 3 DF
  7. AMOXAPINE [Concomitant]
     Active Substance: AMOXAPINE
     Dosage: 3 DF

REACTIONS (6)
  - Feeling abnormal [Recovered/Resolved]
  - Anaphylactoid reaction [Recovered/Resolved]
  - Blood pressure increased [Recovered/Resolved]
  - Hyperventilation [Recovered/Resolved]
  - Nausea [Recovered/Resolved]
  - Dyspnoea [Recovered/Resolved]

NARRATIVE: CASE EVENT DATE: 20201125
